FAERS Safety Report 15459395 (Version 1)
Quarter: 2018Q4

REPORT INFORMATION
  Report Type: Spontaneous
  Country: US (occurrence: US)
  Receive Date: 20181003
  Receipt Date: 20181003
  Transmission Date: 20190204
  Serious: Yes (Death)
  Sender: FDA-Public Use
  Company Number: US-ASTRAZENECA-2018SF23914

PATIENT
  Age: 64 Year
  Sex: Male

DRUGS (6)
  1. CARBOPLATIN. [Concomitant]
     Active Substance: CARBOPLATIN
     Indication: CHEMOTHERAPY
     Dosage: 3 CYCLES
  2. CRIZOTINIB [Suspect]
     Active Substance: CRIZOTINIB
     Indication: LUNG ADENOCARCINOMA
  3. CRIZOTINIB [Suspect]
     Active Substance: CRIZOTINIB
     Indication: LUNG ADENOCARCINOMA
  4. PEMETREXED. [Concomitant]
     Active Substance: PEMETREXED
     Indication: CHEMOTHERAPY
     Dosage: 3 CYCLES
  5. ERLOTINIB [Concomitant]
     Active Substance: ERLOTINIB
  6. OSIMERTINIB. [Suspect]
     Active Substance: OSIMERTINIB
     Indication: LUNG ADENOCARCINOMA
     Route: 048

REACTIONS (2)
  - Malignant neoplasm progression [Fatal]
  - Drug resistance [Fatal]
